FAERS Safety Report 16846532 (Version 4)
Quarter: 2023Q4

REPORT INFORMATION
  Report Type: Spontaneous
  Country: US (occurrence: US)
  Receive Date: 20190924
  Receipt Date: 20231204
  Transmission Date: 20240110
  Serious: Yes (Death, Hospitalization, Other)
  Sender: FDA-Public Use
  Company Number: US-GILEAD-2019-0429240

PATIENT
  Age: 60 Year
  Sex: Male
  Weight: 68.027 kg

DRUGS (52)
  1. TRUVADA [Suspect]
     Active Substance: EMTRICITABINE\TENOFOVIR DISOPROXIL FUMARATE
     Indication: HIV infection
     Dosage: UNK
     Route: 048
     Dates: start: 2001, end: 2018
  2. TRUVADA [Suspect]
     Active Substance: EMTRICITABINE\TENOFOVIR DISOPROXIL FUMARATE
     Dosage: UNK
     Route: 048
     Dates: start: 20180102, end: 201805
  3. VIREAD [Suspect]
     Active Substance: TENOFOVIR DISOPROXIL FUMARATE
     Indication: HIV infection
     Dosage: UNK
     Route: 048
     Dates: start: 2001, end: 2018
  4. VIREAD [Suspect]
     Active Substance: TENOFOVIR DISOPROXIL FUMARATE
     Dosage: UNK
     Route: 065
     Dates: start: 20090501, end: 20171205
  5. EPZICOM [Concomitant]
     Active Substance: ABACAVIR SULFATE\LAMIVUDINE
  6. VIRAMUNE [Concomitant]
     Active Substance: NEVIRAPINE
  7. ABACAVIR\LAMIVUDINE [Concomitant]
     Active Substance: ABACAVIR\LAMIVUDINE
  8. ABILIFY [Concomitant]
     Active Substance: ARIPIPRAZOLE
  9. ACYCLOVIR SODIUM [Concomitant]
     Active Substance: ACYCLOVIR SODIUM
  10. AMOXICILLIN [Concomitant]
     Active Substance: AMOXICILLIN
  11. ANDROGEL [Concomitant]
     Active Substance: TESTOSTERONE
  12. ATORVASTATIN [Concomitant]
     Active Substance: ATORVASTATIN
  13. BENICAR [Concomitant]
     Active Substance: OLMESARTAN MEDOXOMIL
  14. BUPROPION [Concomitant]
     Active Substance: BUPROPION
  15. CIALIS [Concomitant]
     Active Substance: TADALAFIL
  16. CLONAZEPAM [Concomitant]
     Active Substance: CLONAZEPAM
  17. CLONIDINE [Concomitant]
     Active Substance: CLONIDINE
  18. CYMBALTA [Concomitant]
     Active Substance: DULOXETINE HYDROCHLORIDE
  19. ALUMINUM HYDROXIDE\DICYCLOMINE HYDROCHLORIDE\MAGNESIUM OXIDE [Concomitant]
     Active Substance: ALUMINUM HYDROXIDE\DICYCLOMINE HYDROCHLORIDE\MAGNESIUM OXIDE
  20. DIOVEN [Concomitant]
  21. EXFORGE [Concomitant]
     Active Substance: AMLODIPINE BESYLATE\VALSARTAN
  22. FLUCONAZOLE [Concomitant]
     Active Substance: FLUCONAZOLE
  23. GABAPENTIN [Concomitant]
     Active Substance: GABAPENTIN
  24. HYDROCHLOROTHIAZIDE [Concomitant]
     Active Substance: HYDROCHLOROTHIAZIDE
  25. HYDROCODONE [Concomitant]
     Active Substance: HYDROCODONE
  26. KEPPRA [Concomitant]
     Active Substance: LEVETIRACETAM
  27. KLOR-CON [Concomitant]
     Active Substance: POTASSIUM CHLORIDE
  28. KLONOPIN [Concomitant]
     Active Substance: CLONAZEPAM
  29. LEVETIRACETAM [Concomitant]
     Active Substance: LEVETIRACETAM
  30. LIPITOR [Concomitant]
     Active Substance: ATORVASTATIN CALCIUM
  31. METOCLOPRAMIDE [Concomitant]
     Active Substance: METOCLOPRAMIDE
  32. METOPROLOL [Concomitant]
     Active Substance: METOPROLOL
  33. MIRTAZAPINE [Concomitant]
     Active Substance: MIRTAZAPINE
  34. NEVIRAPINE [Concomitant]
     Active Substance: NEVIRAPINE
  35. NORCO [Concomitant]
     Active Substance: ACETAMINOPHEN\HYDROCODONE BITARTRATE
  36. OMEPRAZOLE [Concomitant]
     Active Substance: OMEPRAZOLE
  37. ONDANSETRON [Concomitant]
     Active Substance: ONDANSETRON
  38. PANTOPRAZOLE [Concomitant]
     Active Substance: PANTOPRAZOLE
  39. PHENADOZ [Concomitant]
     Active Substance: PROMETHAZINE HYDROCHLORIDE
  40. POTASSIUM CHLORIDE [Concomitant]
     Active Substance: POTASSIUM CHLORIDE
  41. PROMETHAZINE [Concomitant]
     Active Substance: PROMETHAZINE HYDROCHLORIDE
  42. PROMETHEGAN [Concomitant]
     Active Substance: PROMETHAZINE HYDROCHLORIDE
  43. REGLAN [Concomitant]
     Active Substance: METOCLOPRAMIDE HYDROCHLORIDE
  44. SENNA LEAF [Concomitant]
     Active Substance: SENNA LEAF
  45. SILVER SULFADIAZINE [Concomitant]
     Active Substance: SILVER SULFADIAZINE
  46. SPIRONOLACTONE [Concomitant]
     Active Substance: SPIRONOLACTONE
  47. TRAZODONE [Concomitant]
     Active Substance: TRAZODONE HYDROCHLORIDE
  48. VIAGRA [Concomitant]
     Active Substance: SILDENAFIL CITRATE
  49. CHOLECALCIFEROL [Concomitant]
     Active Substance: CHOLECALCIFEROL
  50. ZOFRAN [Concomitant]
     Active Substance: ONDANSETRON HYDROCHLORIDE
  51. ZOLPIDEM TARTRATE [Concomitant]
     Active Substance: ZOLPIDEM TARTRATE
  52. ZYRTEC [Concomitant]
     Active Substance: CETIRIZINE HYDROCHLORIDE

REACTIONS (8)
  - Renal failure [Fatal]
  - Chronic kidney disease [Fatal]
  - Acute kidney injury [Fatal]
  - Emotional distress [Not Recovered/Not Resolved]
  - Pain [Not Recovered/Not Resolved]
  - Anxiety [Not Recovered/Not Resolved]
  - Anhedonia [Not Recovered/Not Resolved]
  - Economic problem [Not Recovered/Not Resolved]

NARRATIVE: CASE EVENT DATE: 20170121
